FAERS Safety Report 5203177-3 (Version None)
Quarter: 2006Q4

REPORT INFORMATION
  Report Type: 
  Country: None (occurrence: None)
  Receive Date: 20061016
  Receipt Date: 20060817
  Transmission Date: 20070319
  Serious: Yes (Other)
  Sender: FDA-Public Use
  Company Number: 2006087838

PATIENT
  Age: 80 Year
  Sex: Female

DRUGS (9)
  1. NEURONTIN [Suspect]
     Indication: TRIGEMINAL NEURALGIA
     Dates: start: 20060401, end: 20060425
  2. LYRICA [Suspect]
     Indication: TRIGEMINAL NEURALGIA
  3. ATACAND [Concomitant]
  4. ATENOLOL [Concomitant]
  5. PREMARIN [Concomitant]
  6. LEVOXYL [Concomitant]
  7. LIPITOR [Concomitant]
  8. PRILOSEC [Concomitant]
  9. ASPIRIN [Concomitant]

REACTIONS (2)
  - ECZEMA [None]
  - PSORIASIS [None]
